FAERS Safety Report 5798779-X (Version None)
Quarter: 2008Q2

REPORT INFORMATION
  Report Type: 
  Country: None (occurrence: None)
  Receive Date: 20080630
  Receipt Date: 20080616
  Transmission Date: 20081010
  Serious: Yes (Other)
  Sender: FDA-Public Use
  Company Number: B0525718A

PATIENT
  Age: 60 Year
  Sex: Male

DRUGS (6)
  1. ZIDOVUDINE [Suspect]
     Indication: ANTIRETROVIRAL THERAPY
     Dosage: 600 MG / PER DAY / ORAL
     Route: 048
     Dates: start: 20020401, end: 20020701
  2. LAMIVUDINE [Suspect]
     Indication: ANTIRETROVIRAL THERAPY
     Dosage: 300 MG / PER ORAL / ORAL
     Route: 048
     Dates: start: 20020401
  3. ABACAVIR SULPHATE TABLET (GENERIC) (ABACAVIR SULPHATE) [Suspect]
     Indication: ANTIRETROVIRAL THERAPY
     Dosage: 600 MG / PER ORAL / ORAL
     Route: 048
     Dates: start: 20020701
  4. EFAVIRENZ [Suspect]
     Indication: ANTIRETROVIRAL THERAPY
     Dosage: 600 MG / PER ORAL / ORAL
     Route: 048
     Dates: start: 20020401, end: 20020701
  5. ENTECAVIR (FORMULATION UNKNOWN) (ENTECAVIR) [Suspect]
     Indication: ANTIRETROVIRAL THERAPY
     Dosage: .5 MG / PER DAY /
     Dates: start: 20061001
  6. STAVUDINE [Suspect]
     Indication: ANTIRETROVIRAL THERAPY
     Dosage: 600 MG / PER ORAL / ORAL
     Route: 048
     Dates: start: 20020701, end: 20060801

REACTIONS (5)
  - ANAEMIA [None]
  - DIZZINESS [None]
  - DRUG RESISTANCE [None]
  - HBV DNA INCREASED [None]
  - MITOCHONDRIAL DNA MUTATION [None]
